FAERS Safety Report 17895756 (Version 1)
Quarter: 2020Q2

REPORT INFORMATION
  Report Type: Spontaneous
  Country: US (occurrence: US)
  Receive Date: 20200615
  Receipt Date: 20200615
  Transmission Date: 20200714
  Serious: Yes (Other)
  Sender: FDA-Public Use
  Company Number: US-AMNEAL PHARMACEUTICALS-2020-AMRX-01613

PATIENT
  Sex: Female
  Weight: 81 kg

DRUGS (1)
  1. METFORMIN HYDROCHLORIDE. [Suspect]
     Active Substance: METFORMIN HYDROCHLORIDE
     Indication: PRODUCT USED FOR UNKNOWN INDICATION
     Dosage: UNK
     Route: 065
     Dates: start: 202003, end: 2020

REACTIONS (7)
  - Hyperglycaemia [Unknown]
  - Abdominal pain upper [Recovered/Resolved]
  - Product residue present [Unknown]
  - Nausea [Not Recovered/Not Resolved]
  - Loss of consciousness [Unknown]
  - Malaise [Unknown]
  - Diarrhoea [Recovering/Resolving]

NARRATIVE: CASE EVENT DATE: 2020
